FAERS Safety Report 17284523 (Version 2)
Quarter: 2020Q1

REPORT INFORMATION
  Report Type: Spontaneous
  Country: US (occurrence: US)
  Receive Date: 20200117
  Receipt Date: 20200130
  Transmission Date: 20200409
  Serious: Yes (Other)
  Sender: FDA-Public Use
  Company Number: US-BAUSCH-BL-2020-001177

PATIENT
  Age: 75 Year
  Sex: Male

DRUGS (9)
  1. PRED FORTE [Concomitant]
     Active Substance: PREDNISOLONE ACETATE
     Indication: PREOPERATIVE CARE
     Dosage: TO RIGHT EYE, ONE WEEK AFTER SURGERY
     Route: 065
  2. LOTEMAX [Suspect]
     Active Substance: LOTEPREDNOL ETABONATE
     Dosage: WEEK LATER
     Route: 047
     Dates: start: 201912, end: 202001
  3. LOTEMAX [Suspect]
     Active Substance: LOTEPREDNOL ETABONATE
     Dosage: WEEK LATER
     Route: 047
     Dates: start: 202001, end: 202001
  4. CILOXAN [Concomitant]
     Active Substance: CIPROFLOXACIN HYDROCHLORIDE
     Indication: PREOPERATIVE CARE
     Dosage: TWO DAYS BEFORE AND 1 WEEK AFTER SURGERY
  5. VIGAMOX [Concomitant]
     Active Substance: MOXIFLOXACIN HYDROCHLORIDE
     Indication: PREOPERATIVE CARE
     Dosage: TWO DAYS BEFORE AND 1 WEEK AFTER SURGERY
  6. CELLUGEL [Concomitant]
     Indication: POSTOPERATIVE CARE
     Dosage: DURING SURGERY
  7. LOTEMAX [Suspect]
     Active Substance: LOTEPREDNOL ETABONATE
     Indication: POSTOPERATIVE CARE
     Route: 047
     Dates: start: 20191211, end: 201912
  8. LOTEMAX [Suspect]
     Active Substance: LOTEPREDNOL ETABONATE
     Indication: INFLAMMATION
     Dosage: NEXT WEEK
     Route: 047
     Dates: start: 201912, end: 201912
  9. AMVISC [Concomitant]
     Indication: POSTOPERATIVE CARE
     Dosage: DURING SURGERY

REACTIONS (2)
  - Cystoid macular oedema [Not Recovered/Not Resolved]
  - Drug ineffective [Unknown]

NARRATIVE: CASE EVENT DATE: 20191211
